FAERS Safety Report 5664878-6 (Version None)
Quarter: 2008Q1

REPORT INFORMATION
  Report Type: 
  Country: None (occurrence: None)
  Receive Date: 20080314
  Receipt Date: 20080303
  Transmission Date: 20080703
  Serious: Yes (Hospitalization, Other)
  Sender: FDA-Public Use
  Company Number: US-PFIZER INC-2008020400

PATIENT
  Sex: Female
  Weight: 54.545 kg

DRUGS (3)
  1. NORVASC [Suspect]
     Indication: HYPERTENSION
     Route: 048
  2. DIURETICS [Concomitant]
  3. DRUG, UNSPECIFIED [Concomitant]

REACTIONS (5)
  - ABNORMAL DREAMS [None]
  - BALANCE DISORDER [None]
  - FALL [None]
  - FATIGUE [None]
  - SUTURE INSERTION [None]
